FAERS Safety Report 5056312-4 (Version None)
Quarter: 2006Q3

REPORT INFORMATION
  Report Type: 
  Country: None (occurrence: None)
  Receive Date: 20060717
  Receipt Date: 20060703
  Transmission Date: 20061208
  Serious: Yes (Other)
  Sender: FDA-Public Use
  Company Number: 2006073800

PATIENT
  Age: 51 Year
  Sex: Male

DRUGS (3)
  1. LYRICA [Suspect]
     Indication: ANXIETY
     Dosage: 75 MG (75 MG, 1 IN 1 D), ORAL
     Route: 048
     Dates: start: 20060604, end: 20060604
  2. XANAX [Concomitant]
  3. DEXAMPHETAMINE (DEXAMFETAMINE) [Concomitant]

REACTIONS (8)
  - DIZZINESS [None]
  - EYE SWELLING [None]
  - FATIGUE [None]
  - MUCOUS MEMBRANE DISORDER [None]
  - NAUSEA [None]
  - OEDEMA MOUTH [None]
  - PARAESTHESIA [None]
  - SWELLING FACE [None]
